FAERS Safety Report 18098624 (Version 1)
Quarter: 2020Q3

REPORT INFORMATION
  Report Type: Spontaneous
  Country: US (occurrence: US)
  Receive Date: 20200731
  Receipt Date: 20200731
  Transmission Date: 20201103
  Serious: Yes (Disabling)
  Sender: FDA-Public Use
  Company Number: None

PATIENT
  Age: 59 Year
  Sex: Female
  Weight: 60.75 kg

DRUGS (11)
  1. ASSURED HAND SANITIZER WITH ALOE VERA [Suspect]
     Active Substance: ALCOHOL
     Indication: ANTIBIOTIC PROPHYLAXIS
     Route: 061
     Dates: start: 20200619, end: 20200619
  2. PROTOPIC [Concomitant]
     Active Substance: TACROLIMUS
  3. PSYLLIUM FIBER [Concomitant]
  4. HRT [Concomitant]
     Active Substance: UNSPECIFIED INGREDIENT
  5. SAW PALMETTO [Concomitant]
     Active Substance: HERBALS\SAW PALMETTO
  6. FLUOCINONIDE. [Concomitant]
     Active Substance: FLUOCINONIDE
  7. OMEGA 3 [Concomitant]
     Active Substance: OMEGA-3 FATTY ACIDS
  8. METRONIDAZOLE. [Concomitant]
     Active Substance: METRONIDAZOLE
  9. TRETINOIN TOPICAL [Concomitant]
     Active Substance: TRETINOIN
  10. TRIPLE ACTION JOINT RELIEF WITH MINERALS [Concomitant]
  11. VIT D [Concomitant]
     Active Substance: VITAMIN D NOS

REACTIONS (2)
  - Skin burning sensation [None]
  - Rash [None]

NARRATIVE: CASE EVENT DATE: 20200619
